FAERS Safety Report 8953724 (Version 1)
Quarter: 2012Q4

REPORT INFORMATION
  Report Type: 
  Country: US (occurrence: US)
  Receive Date: 20121206
  Receipt Date: 20121206
  Transmission Date: 20130627
  Serious: Yes (Hospitalization)
  Sender: FDA-Public Use
  Company Number: US-MYLANLABS-2012S1024422

PATIENT
  Age: 77 Year
  Sex: Male
  Weight: 63 kg

DRUGS (18)
  1. DABIGATRAN ETEXILATE [Suspect]
     Indication: ANTICOAGULANT THERAPY
     Route: 048
  2. AMIODARONE [Interacting]
     Indication: ATRIAL FIBRILLATION
     Route: 050
  3. AMIODARONE [Interacting]
     Indication: ATRIAL FIBRILLATION
     Route: 065
  4. AMIODARONE [Interacting]
     Indication: ATRIAL FIBRILLATION
     Route: 065
  5. AMIODARONE [Interacting]
     Indication: ATRIAL FIBRILLATION
     Route: 048
  6. WARFARIN [Suspect]
     Indication: PROPHYLAXIS
     Route: 065
  7. ASPIRIN [Concomitant]
     Route: 048
  8. CITALOPRAM [Concomitant]
     Route: 048
  9. DIGOXIN [Concomitant]
     Route: 048
  10. FINASTERIDE [Concomitant]
     Route: 048
  11. FUROSEMIDE [Concomitant]
     Route: 048
  12. GLIPIZIDE [Concomitant]
     Route: 048
  13. LISINOPRIL [Concomitant]
     Route: 048
  14. MEGESTROL [Concomitant]
     Route: 048
  15. METOPROLOL [Concomitant]
     Route: 048
  16. PANTOPRAZOLE [Concomitant]
     Route: 048
  17. TAMSULOSIN [Concomitant]
     Route: 048
  18. INSULIN LISPRO [Concomitant]
     Dosage: sliding scale for dosage
     Route: 058

REACTIONS (3)
  - Upper gastrointestinal haemorrhage [Recovered/Resolved]
  - Drug interaction [Recovered/Resolved]
  - International normalised ratio fluctuation [Recovered/Resolved]
